FAERS Safety Report 7643792-0 (Version None)
Quarter: 2011Q3

REPORT INFORMATION
  Report Type: 
  Country: None (occurrence: None)
  Receive Date: 20110729
  Receipt Date: 20110721
  Transmission Date: 20111222
  Serious: Yes (Hospitalization)
  Sender: FDA-Public Use
  Company Number: US-AMGEN-USASP2011037217

PATIENT
  Age: 52 Year
  Sex: Female

DRUGS (11)
  1. LISINOPRIL [Concomitant]
  2. DIPYRIDAMOLE [Concomitant]
  3. PHOSLO [Concomitant]
  4. TUMS                               /00108001/ [Concomitant]
  5. RENVELA [Concomitant]
  6. EPOGEN [Suspect]
     Indication: RENAL FAILURE CHRONIC
     Dosage: 17600 IU, 3 TIMES/WK
  7. XANAX [Concomitant]
  8. ERGOCALCIFEROL [Concomitant]
  9. TEMAZEPAM [Concomitant]
  10. NIFEDIPINE [Concomitant]
  11. ASPIRIN [Concomitant]

REACTIONS (2)
  - HOSPITALISATION [None]
  - HAEMOGLOBIN DECREASED [None]
